FAERS Safety Report 13551491 (Version 1)
Quarter: 2017Q2

REPORT INFORMATION
  Report Type: Spontaneous
  Country: US (occurrence: US)
  Receive Date: 20170516
  Receipt Date: 20170516
  Transmission Date: 20170830
  Serious: Yes (Death, Other)
  Sender: FDA-Public Use
  Company Number: US-BRISTOL-MYERS SQUIBB COMPANY-BMS-2017-041358

PATIENT
  Age: 8 Year
  Sex: Male

DRUGS (1)
  1. SPRYCEL [Suspect]
     Active Substance: DASATINIB
     Indication: ACUTE LYMPHOCYTIC LEUKAEMIA
     Dosage: 1 DF, QD
     Route: 048
     Dates: start: 20160107, end: 20170402

REACTIONS (2)
  - Drug administered to patient of inappropriate age [Unknown]
  - Death [Fatal]

NARRATIVE: CASE EVENT DATE: 20170508
